FAERS Safety Report 5212850-2 (Version None)
Quarter: 2007Q1

REPORT INFORMATION
  Report Type: 
  Country: None (occurrence: None)
  Receive Date: 20070119
  Receipt Date: 20070110
  Transmission Date: 20070707
  Serious: Yes (Other)
  Sender: FDA-Public Use
  Company Number: GB-JNJFOC-20070103083

PATIENT
  Age: 28 Year
  Sex: Female
  Weight: 71 kg

DRUGS (2)
  1. TOPAMAX [Suspect]
     Indication: HEADACHE
     Route: 048
  2. GABAPENTIN [Concomitant]
     Indication: HEADACHE
     Route: 048

REACTIONS (1)
  - SPIDER NAEVUS [None]
